FAERS Safety Report 16510025 (Version 1)
Quarter: 2019Q3

REPORT INFORMATION
  Report Type: Report from Study
  Country: BR (occurrence: BR)
  Receive Date: 20190701
  Receipt Date: 20190701
  Transmission Date: 20191004
  Serious: Yes (Hospitalization, Other)
  Sender: FDA-Public Use
  Company Number: BR-UCBSA-2019026637

PATIENT
  Sex: Female
  Weight: 70 kg

DRUGS (2)
  1. TOPIRAMATO [Concomitant]
     Active Substance: TOPIRAMATE
     Indication: SEIZURE
     Dosage: UNK
     Route: 048
  2. LEVETIRACETAM. [Suspect]
     Active Substance: LEVETIRACETAM
     Indication: SEIZURE
     Dosage: 750 MILLIGRAM, 2X/DAY (BID)
     Route: 048
     Dates: start: 2016

REACTIONS (3)
  - Drug ineffective [Unknown]
  - Seizure [Recovering/Resolving]
  - Thermal burn [Unknown]

NARRATIVE: CASE EVENT DATE: 2017
